FAERS Safety Report 4730330-5 (Version None)
Quarter: 2005Q3

REPORT INFORMATION
  Report Type: 
  Country: None (occurrence: None)
  Receive Date: 20050728
  Receipt Date: 20050628
  Transmission Date: 20060218
  Serious: Yes (Life-Threatening, Other)
  Sender: FDA-Public Use
  Company Number: 200512157GDS

PATIENT
  Age: 74 Year
  Sex: Male
  Weight: 63 kg

DRUGS (8)
  1. MOXIFLOXACIN HCL [Suspect]
     Indication: CHRONIC OBSTRUCTIVE PULMONARY DISEASE
     Dosage: 400 MG, TOTAL DAILY, ORAL
     Route: 048
     Dates: start: 20050617
  2. SINTROM [Concomitant]
  3. DIGOXIN [Concomitant]
  4. AMILORIDE HCL AND HYDROCHLOROTHIAZIDE [Concomitant]
  5. SPIRIVA ^BOEHRINGER INGELHEIM^ [Concomitant]
  6. TRIALMIN [Concomitant]
  7. VENTOLIN [Concomitant]
  8. ALLOPURINOL [Concomitant]

REACTIONS (1)
  - BRONCHOSPASM [None]
